FAERS Safety Report 13821977 (Version 2)
Quarter: 2017Q3

REPORT INFORMATION
  Report Type: Spontaneous
  Country: US (occurrence: US)
  Receive Date: 20170801
  Receipt Date: 20170803
  Transmission Date: 20171127
  Serious: No
  Sender: FDA-Public Use
  Company Number: US-009507513-1707USA005673

PATIENT
  Age: 73 Year
  Sex: Female

DRUGS (4)
  1. INTRON A [Suspect]
     Active Substance: INTERFERON ALFA-2B
     Indication: MALIGNANT MELANOMA
     Dosage: 25 MILLION IU, TIW
     Route: 065
     Dates: start: 20160908
  2. VITAMINS (UNSPECIFIED) [Concomitant]
     Active Substance: VITAMINS
     Route: 065
  3. INTRON A [Suspect]
     Active Substance: INTERFERON ALFA-2B
     Dosage: 25 MILLION IU, TIW
     Route: 065
     Dates: start: 20160908
  4. INTRON A [Suspect]
     Active Substance: INTERFERON ALFA-2B
     Indication: MALIGNANT MELANOMA
     Dosage: 25 MILLION IU, TIW
     Route: 065
     Dates: start: 20160908

REACTIONS (3)
  - Product use issue [Unknown]
  - Fatigue [Unknown]
  - Irritability [Unknown]

NARRATIVE: CASE EVENT DATE: 20160908
